FAERS Safety Report 6063947-9 (Version None)
Quarter: 2009Q1

REPORT INFORMATION
  Report Type: 
  Country: None (occurrence: None)
  Receive Date: 20090204
  Receipt Date: 20090126
  Transmission Date: 20090719
  Serious: Yes (Hospitalization)
  Sender: FDA-Public Use
  Company Number: PHHY2009SE02598

PATIENT
  Sex: Female

DRUGS (7)
  1. COMBIPATCH [Suspect]
     Dosage: UNK
     Dates: end: 20081201
  2. ACETAMINOPHEN [Concomitant]
  3. TRADOLAN [Concomitant]
  4. METOPROLOL SUCCINATE [Concomitant]
  5. SIMVASTATIN [Concomitant]
  6. CALCICHEW-D3 [Concomitant]
  7. LEVOTHYROXINE SODIUM [Concomitant]

REACTIONS (10)
  - CHEST PAIN [None]
  - HYPERCHOLESTEROLAEMIA [None]
  - HYPERTHYROIDISM [None]
  - INTERVERTEBRAL DISC COMPRESSION [None]
  - OSTEOPOROSIS [None]
  - PNEUMONIA [None]
  - PULMONARY EMBOLISM [None]
  - PULMONARY THROMBOSIS [None]
  - ROAD TRAFFIC ACCIDENT [None]
  - TRANSIENT ISCHAEMIC ATTACK [None]
